FAERS Safety Report 20324829 (Version 3)
Quarter: 2022Q3

REPORT INFORMATION
  Report Type: Spontaneous
  Country: US (occurrence: US)
  Receive Date: 20220111
  Receipt Date: 20220712
  Transmission Date: 20221026
  Serious: No
  Sender: FDA-Public Use
  Company Number: US-MYOVANT SCIENCES GMBH-2021MYSCI1200457

PATIENT
  Sex: Male

DRUGS (5)
  1. ORGOVYX [Suspect]
     Active Substance: RELUGOLIX
     Indication: Prostate cancer
     Dosage: 360 MILLIGRAM, ONE TIME DOSE
     Route: 048
  2. ORGOVYX [Suspect]
     Active Substance: RELUGOLIX
     Dosage: 120 MILLIGRAM, QD
     Route: 048
     Dates: start: 202111
  3. ORGOVYX [Suspect]
     Active Substance: RELUGOLIX
     Dosage: UNK
  4. METAMUCIL                          /00029101/ [Concomitant]
     Indication: Product used for unknown indication
     Route: 065
  5. COLACE [Concomitant]
     Active Substance: DOCUSATE SODIUM
     Indication: Product used for unknown indication
     Route: 065

REACTIONS (8)
  - Chest discomfort [Unknown]
  - Constipation [Not Recovered/Not Resolved]
  - Hot flush [Not Recovered/Not Resolved]
  - Night sweats [Unknown]
  - Haematoma [Unknown]
  - Orchitis [Unknown]
  - Stress [Unknown]
  - Therapy interrupted [Unknown]
